FAERS Safety Report 8420270-2 (Version None)
Quarter: 2012Q2

REPORT INFORMATION
  Report Type: 
  Country: None (occurrence: None)
  Receive Date: 20120607
  Receipt Date: 20120524
  Transmission Date: 20120825
  Serious: Yes (Life-Threatening, Hospitalization, Other)
  Sender: FDA-Public Use
  Company Number: US-MYLANLABS-2009AC000236

PATIENT
  Age: 72 Year
  Sex: Male
  Weight: 85.73 kg

DRUGS (74)
  1. SEROQUEL [Concomitant]
  2. ALPRAZOLAM [Concomitant]
  3. DILTIAZEM [Concomitant]
  4. CELEXA [Concomitant]
  5. ZAROXOLYN [Concomitant]
  6. ADVAIR DISKUS 100/50 [Concomitant]
  7. BACTRIM [Concomitant]
  8. LEVAQUIN [Concomitant]
  9. TARKA [Concomitant]
  10. PLAVIX [Concomitant]
  11. SINGULAIR [Concomitant]
  12. VITAMIN B COMPLEX WITH C [Concomitant]
  13. TOPROL-XL [Concomitant]
  14. AMIODARONE HCL [Concomitant]
  15. AMITRIPTYLINE HCL [Concomitant]
  16. ATIVAN [Concomitant]
  17. ELAVIL [Concomitant]
  18. HYDROCODONE [Concomitant]
  19. KEFLEX [Concomitant]
  20. ACETAMINOPHEN [Concomitant]
  21. XYLOCAINE [Concomitant]
  22. LEXAPRO [Concomitant]
  23. XANAX [Concomitant]
  24. IBUPROFEN (ADVIL) [Concomitant]
  25. ATROVENT [Concomitant]
  26. LABETALOL HYDROCHLORIDE [Concomitant]
  27. NORVASC [Concomitant]
  28. VITAMIN K TAB [Concomitant]
  29. CALCIUM 600 + D [Concomitant]
  30. CITALOPRAM HYDROBROMIDE [Concomitant]
  31. DEPO-MEDROL [Concomitant]
  32. SULAR [Concomitant]
  33. VERAPAMIL [Concomitant]
  34. REQUIP [Concomitant]
  35. SPIRIVA [Concomitant]
  36. POTASSIUM CHLORIDE [Concomitant]
  37. SPIRONOLACTONE [Concomitant]
  38. ASCORBIC ACID [Concomitant]
  39. CARVEDILOL [Concomitant]
  40. POTASSIUM [Concomitant]
  41. CLARITIN /00413701/ [Concomitant]
  42. POTASSIUM CHLORIDE [Concomitant]
  43. LONITEN [Concomitant]
  44. LOTENSIN [Concomitant]
  45. MODURETIC 5-50 [Concomitant]
  46. SINEMET [Concomitant]
  47. CARDIZEM [Concomitant]
  48. IRON [Concomitant]
  49. CLONIDINE [Concomitant]
  50. FELODIPINE [Concomitant]
  51. MAVIK [Concomitant]
  52. SOTALOL [Concomitant]
  53. DIGOXIN [Suspect]
     Route: 048
     Dates: start: 20031129, end: 20080319
  54. FLOMAX [Concomitant]
  55. COREG [Concomitant]
  56. FUROSEMIDE [Concomitant]
  57. ADVAIR DISKUS 100/50 [Concomitant]
  58. LASIX [Concomitant]
  59. COUMADIN [Concomitant]
  60. NAPROXEN (ALEVE) [Concomitant]
  61. ASPIRIN [Concomitant]
  62. BETACINE [Concomitant]
  63. BETAPACE [Concomitant]
  64. DIOVAN [Concomitant]
  65. NEXIUM [Concomitant]
  66. ROCEPHIN [Concomitant]
  67. SPIRIVA [Concomitant]
  68. ARICEPT [Concomitant]
  69. ALBUTEROL [Concomitant]
  70. ALDACTONE [Concomitant]
  71. ANTIVERT [Concomitant]
  72. LOTREL [Concomitant]
  73. PROVENTIL [Concomitant]
  74. VERELAN [Concomitant]

REACTIONS (162)
  - OXYGEN SUPPLEMENTATION [None]
  - ASTHENIA [None]
  - BRADYCARDIA [None]
  - BLOOD UREA INCREASED [None]
  - ATRIAL TACHYCARDIA [None]
  - MACULAR DEGENERATION [None]
  - OSTEOARTHRITIS [None]
  - DEMENTIA [None]
  - TOBACCO ABUSE [None]
  - CARDIOMYOPATHY [None]
  - HYPERTENSION [None]
  - LETHARGY [None]
  - RECTAL HAEMORRHAGE [None]
  - STRESS [None]
  - HYPOTENSION [None]
  - SEROMA [None]
  - THIRST [None]
  - EAR INFECTION [None]
  - PERIPHERAL ARTERIAL OCCLUSIVE DISEASE [None]
  - PNEUMONIA [None]
  - IRON DEFICIENCY [None]
  - FLUID RETENTION [None]
  - GASTRITIS [None]
  - GASTROOESOPHAGEAL REFLUX DISEASE [None]
  - ECHOCARDIOGRAM ABNORMAL [None]
  - ECONOMIC PROBLEM [None]
  - NON-SMALL CELL LUNG CANCER STAGE IIIB [None]
  - LUNG LOBECTOMY [None]
  - CHEMOTHERAPY [None]
  - TOXICITY TO VARIOUS AGENTS [None]
  - INCREASED TENDENCY TO BRUISE [None]
  - PERICARDIAL EFFUSION [None]
  - FATIGUE [None]
  - SOCIAL AVOIDANT BEHAVIOUR [None]
  - LUNG NEOPLASM MALIGNANT [None]
  - CARDIOGENIC SHOCK [None]
  - BRONCHOSPASM [None]
  - ANAEMIA [None]
  - MENTAL STATUS CHANGES [None]
  - MALAISE [None]
  - SINUSITIS [None]
  - PHARYNGITIS [None]
  - UPPER RESPIRATORY TRACT INFECTION [None]
  - RESPIRATORY TRACT CONGESTION [None]
  - CARDIORENAL SYNDROME [None]
  - DILATATION ATRIAL [None]
  - LEFT VENTRICULAR HYPERTROPHY [None]
  - ILL-DEFINED DISORDER [None]
  - RENAL FAILURE [None]
  - PRESYNCOPE [None]
  - CARDIAC DISORDER [None]
  - BRADYARRHYTHMIA [None]
  - AORTIC STENOSIS [None]
  - RENAL ATROPHY [None]
  - PLANTAR FASCIITIS [None]
  - INSOMNIA [None]
  - DRY EYE [None]
  - OROPHARYNGEAL PAIN [None]
  - HYPERTRIGLYCERIDAEMIA [None]
  - OXYGEN SATURATION DECREASED [None]
  - ABDOMINAL HERNIA [None]
  - NEPHROLITHIASIS [None]
  - PLEURAL EFFUSION [None]
  - CHRONIC OBSTRUCTIVE PULMONARY DISEASE [None]
  - SLEEP APNOEA SYNDROME [None]
  - WEIGHT INCREASED [None]
  - RENAL FAILURE CHRONIC [None]
  - GASTROINTESTINAL HAEMORRHAGE [None]
  - LOSS OF EMPLOYMENT [None]
  - APNOEA [None]
  - PERICARDITIS [None]
  - MEMORY IMPAIRMENT [None]
  - POLLAKIURIA [None]
  - NASOPHARYNGITIS [None]
  - DYSARTHRIA [None]
  - MUSCULAR WEAKNESS [None]
  - SKIN EXFOLIATION [None]
  - SNORING [None]
  - POOR QUALITY SLEEP [None]
  - HYPOACUSIS [None]
  - ARTERIOSCLEROSIS [None]
  - FLUID OVERLOAD [None]
  - EMOTIONAL DISTRESS [None]
  - ABNORMAL SLEEP-RELATED EVENT [None]
  - DIZZINESS [None]
  - CARDIAC FAILURE CONGESTIVE [None]
  - RESTLESS LEGS SYNDROME [None]
  - RENAL MASS [None]
  - DIVERTICULUM INTESTINAL HAEMORRHAGIC [None]
  - INTRACRANIAL ANEURYSM [None]
  - NERVOUSNESS [None]
  - PAIN IN EXTREMITY [None]
  - COUGH [None]
  - SINUS CONGESTION [None]
  - SOMNOLENCE [None]
  - EPIDIDYMITIS [None]
  - DEMENTIA ALZHEIMER'S TYPE [None]
  - VASCULAR CALCIFICATION [None]
  - ABDOMINAL TENDERNESS [None]
  - CONTINUOUS POSITIVE AIRWAY PRESSURE [None]
  - CARDIOMEGALY [None]
  - CORONARY ARTERY DISEASE [None]
  - PULMONARY HYPERTENSION [None]
  - TRANSIENT ISCHAEMIC ATTACK [None]
  - DIVERTICULUM [None]
  - BRONCHITIS [None]
  - PULMONARY OEDEMA [None]
  - ATRIAL THROMBOSIS [None]
  - ATELECTASIS [None]
  - CEREBRAL ATROPHY [None]
  - NAUSEA [None]
  - PALPITATIONS [None]
  - APHASIA [None]
  - BACK PAIN [None]
  - MIDDLE INSOMNIA [None]
  - PERIODIC LIMB MOVEMENT DISORDER [None]
  - CERUMEN IMPACTION [None]
  - PRODUCTIVE COUGH [None]
  - SINUS OPERATION [None]
  - HYPERCHOLESTEROLAEMIA [None]
  - GAIT DISTURBANCE [None]
  - CHEST X-RAY ABNORMAL [None]
  - GENERAL PHYSICAL CONDITION ABNORMAL [None]
  - PLEURODESIS [None]
  - BLOOD CREATININE INCREASED [None]
  - COLONIC POLYP [None]
  - FAILURE TO THRIVE [None]
  - CARDIOVERSION [None]
  - DRUG HYPERSENSITIVITY [None]
  - PULMONARY EMBOLISM [None]
  - ASTHMA [None]
  - ECZEMA [None]
  - BENIGN PROSTATIC HYPERPLASIA [None]
  - INFLUENZA [None]
  - MUSCLE SPASMS [None]
  - CHOLELITHIASIS [None]
  - OBESITY [None]
  - EXTRASYSTOLES [None]
  - PAIN [None]
  - INJURY [None]
  - DYSPNOEA [None]
  - ATRIAL FIBRILLATION [None]
  - DECREASED APPETITE [None]
  - OEDEMA PERIPHERAL [None]
  - DIASTOLIC DYSFUNCTION [None]
  - MITRAL VALVE INCOMPETENCE [None]
  - HYPOKALAEMIA [None]
  - HYPOXIA [None]
  - RESPIRATORY FAILURE [None]
  - MYOCARDIAL ISCHAEMIA [None]
  - RENAL CELL CARCINOMA [None]
  - CHEST PAIN [None]
  - FEELING JITTERY [None]
  - VERTIGO [None]
  - TACHYCARDIA [None]
  - PULMONARY MASS [None]
  - PERIPHERAL COLDNESS [None]
  - EAR PAIN [None]
  - CONTUSION [None]
  - LEFT VENTRICULAR DYSFUNCTION [None]
  - COMPUTERISED TOMOGRAM ABNORMAL [None]
  - WHEEZING [None]
